FAERS Safety Report 17156048 (Version 1)
Quarter: 2019Q4

REPORT INFORMATION
  Report Type: Spontaneous
  Country: US (occurrence: US)
  Receive Date: 20191216
  Receipt Date: 20191216
  Transmission Date: 20200122
  Serious: No
  Sender: FDA-Public Use
  Company Number: US-UCBSA-2015028903

PATIENT
  Age: 45 Year
  Sex: Male

DRUGS (4)
  1. DILANTIN [Concomitant]
     Active Substance: PHENYTOIN
     Dosage: UNK
  2. DILANTIN [Concomitant]
     Active Substance: PHENYTOIN
     Dosage: 100 MG CAPSULE , 5 BY MOUTH
     Route: 048
  3. VIMPAT [Suspect]
     Active Substance: LACOSAMIDE
     Indication: SEIZURE
     Dosage: 200 MG, 2X/DAY (BID)
     Route: 048
     Dates: start: 20100628
  4. CLONAZEPAM. [Concomitant]
     Active Substance: CLONAZEPAM
     Indication: PRODUCT USED FOR UNKNOWN INDICATION
     Dosage: 0.5 MG , TAKE HALF TO 1 TABLET
     Route: 048
     Dates: start: 20100428

REACTIONS (2)
  - Seizure [Recovered/Resolved]
  - Hyperhidrosis [Not Recovered/Not Resolved]

NARRATIVE: CASE EVENT DATE: 201501
